FAERS Safety Report 20195386 (Version 2)
Quarter: 2021Q4

REPORT INFORMATION
  Report Type: Report from Study
  Country: DE (occurrence: DE)
  Receive Date: 20211216
  Receipt Date: 20211224
  Transmission Date: 20220303
  Serious: Yes (Hospitalization, Other)
  Sender: FDA-Public Use
  Company Number: DE-002147023-NVSC2021DE158738

PATIENT
  Sex: Female

DRUGS (27)
  1. MORPHINE SULFATE [Suspect]
     Active Substance: MORPHINE SULFATE
     Indication: Chronic idiopathic pain syndrome
     Dosage: 20 MG, TID
     Route: 048
     Dates: start: 2010, end: 20210509
  2. MORPHINE SULFATE [Suspect]
     Active Substance: MORPHINE SULFATE
     Dosage: 10 MG, QID
     Route: 048
     Dates: start: 20211004
  3. MORPHINE SULFATE [Suspect]
     Active Substance: MORPHINE SULFATE
     Dosage: 10 MG, TID
     Route: 048
     Dates: start: 20210510, end: 20210813
  4. MORPHINE SULFATE [Suspect]
     Active Substance: MORPHINE SULFATE
     Dosage: 10 MG, BID
     Route: 048
     Dates: start: 20210814, end: 20211003
  5. MORPHINE SULFATE [Suspect]
     Active Substance: MORPHINE SULFATE
     Dosage: 20 MG, TID
     Route: 048
     Dates: start: 20211016
  6. CHOLECALCIFEROL [Concomitant]
     Active Substance: CHOLECALCIFEROL
     Indication: Osteoporosis prophylaxis
     Dosage: 20000 IU, WEEKLY (20000 IU, QW)
     Route: 048
     Dates: start: 2020
  7. AVOBENZONE\HOMOSALATE\OCTISALATE [Concomitant]
     Active Substance: AVOBENZONE\HOMOSALATE\OCTISALATE
     Indication: Multi-vitamin deficiency
     Dosage: 1 DF, DAILY (1 DF, QD (50))
     Route: 048
     Dates: start: 20210725
  8. MUCOFALK                           /00029101/ [Concomitant]
     Indication: Gastrointestinal motility disorder
     Dosage: 5 MG, DAILY- (QD)
     Route: 048
     Dates: start: 2017, end: 20210426
  9. MUCOFALK                           /00029101/ [Concomitant]
     Dosage: 5 MG, DAILY (QD)
     Route: 048
     Dates: start: 20210514
  10. AMLODIPINE [Concomitant]
     Active Substance: AMLODIPINE BESYLATE
     Indication: Hypertension
     Dosage: 5 MG, DAILY (QD)
     Route: 048
     Dates: start: 20210515, end: 20210522
  11. METAMIZOLE [Concomitant]
     Active Substance: METAMIZOLE
     Indication: Psoriatic arthropathy
     Dosage: 500 MG, PRN ( (AS NEEDED)
     Route: 048
     Dates: start: 2019
  12. METAMIZOLE [Concomitant]
     Active Substance: METAMIZOLE
     Indication: Chronic idiopathic pain syndrome
  13. ZOPICLONE [Concomitant]
     Active Substance: ZOPICLONE
     Indication: Sleep disorder
     Dosage: 7.5 MG, PRN
     Route: 048
     Dates: start: 20210515
  14. FOLIC ACID [Concomitant]
     Active Substance: FOLIC ACID
     Indication: Prophylaxis
     Dosage: 5 MG, DAILY (QD)
     Route: 048
     Dates: start: 2007, end: 20211018
  15. OXAZEPAM [Concomitant]
     Active Substance: OXAZEPAM
     Indication: Anxiety
     Dosage: 20 MG, DAILY (10 MG, BID)
     Route: 048
     Dates: start: 2017
  16. LACTOSE [Concomitant]
     Active Substance: LACTOSE
     Indication: Gastrointestinal motility disorder
     Dosage: UNK (1 TABLESPOON AS NEEDED)
     Route: 048
     Dates: start: 20210515
  17. CELECOXIB [Concomitant]
     Active Substance: CELECOXIB
     Indication: Psoriatic arthropathy
     Dosage: 400 MG, DAILY (200 MG, BID)
     Route: 048
     Dates: start: 2017
  18. CARBAMAZEPINE [Concomitant]
     Active Substance: CARBAMAZEPINE
     Indication: Epilepsy
     Dosage: 1200 MG, DAILY (600 MG, BID)
     Route: 048
     Dates: start: 1990
  19. FENTANYL [Concomitant]
     Active Substance: FENTANYL
     Indication: Chronic idiopathic pain syndrome
     Dosage: 100 MG, UNK (100 MG /100 UG, EVERY THIRD DAY)
     Route: 062
     Dates: start: 2015, end: 20210509
  20. FENTANYL [Concomitant]
     Active Substance: FENTANYL
     Dosage: 100 MG, UNK (100 MG /100 ?G, EVERY THIRD DAY)
     Route: 062
     Dates: start: 2015
  21. PANTOPRAZOLE [Concomitant]
     Active Substance: PANTOPRAZOLE
     Indication: Gastritis prophylaxis
     Dosage: 40 MG, DAILY (QD)
     Route: 048
     Dates: start: 2012
  22. VITAMIN B12 [Concomitant]
     Active Substance: CYANOCOBALAMIN
     Indication: Vitamin B12 deficiency
     Dosage: UNK Q4W
     Route: 030
     Dates: start: 202105
  23. ESTRAMON                           /00045401/ [Concomitant]
     Indication: Hormone replacement therapy
     Dosage: 50 MCG, UNK (50 UG EVERY 3 DAYS)
     Route: 061
     Dates: start: 1995, end: 20210803
  24. PARACETAMOL COMP                   /00271101/ [Concomitant]
     Indication: Pain
     Dosage: 1 DF, PRN
     Route: 048
     Dates: start: 20210614
  25. METOPROLOL SUCCINATE [Concomitant]
     Active Substance: METOPROLOL SUCCINATE
     Indication: Tachycardia
     Dosage: 23.75 MG, DAILY (QD)
     Route: 048
     Dates: start: 20210517
  26. PREDNISOLONE [Concomitant]
     Active Substance: PREDNISOLONE
     Indication: Psoriatic arthropathy
     Dosage: 5 MG, DAILY (QD)
     Route: 048
     Dates: start: 20210420
  27. OXYTETRACYCLINE [Concomitant]
     Active Substance: OXYTETRACYCLINE
     Indication: Influenza immunisation
     Dosage: 0.5 ML, DAILY
     Route: 030
     Dates: start: 20211115, end: 20211115

REACTIONS (10)
  - Bowen^s disease [Unknown]
  - Ileus [Recovered/Resolved]
  - Ileus paralytic [Recovered/Resolved]
  - Urinary incontinence [Unknown]
  - Oedema [Unknown]
  - Arthralgia [Unknown]
  - Constipation [Recovered/Resolved]
  - Nasopharyngitis [Recovered/Resolved]
  - Gastrointestinal infection [Recovered/Resolved]
  - Norovirus infection [Recovered/Resolved]

NARRATIVE: CASE EVENT DATE: 20210426
